FAERS Safety Report 19975535 (Version 1)
Quarter: 2021Q4

REPORT INFORMATION
  Report Type: Spontaneous
  Country: US (occurrence: US)
  Receive Date: 20211020
  Receipt Date: 20211020
  Transmission Date: 20220303
  Serious: No
  Sender: FDA-Public Use
  Company Number: US-NESTLEHEALTHSCIENCE-2021000015

PATIENT
  Age: 82 Year
  Sex: Female

DRUGS (2)
  1. ZENPEP [Suspect]
     Active Substance: PANCRELIPASE AMYLASE\PANCRELIPASE LIPASE\PANCRELIPASE PROTEASE
     Dosage: 2 CAPSULES WITH EACH MEAL; 1 WITH SNACK TOTALING 7/DAY
     Dates: start: 202010
  2. INDERAL [Concomitant]
     Active Substance: PROPRANOLOL HYDROCHLORIDE
     Dosage: 80 MG BID

REACTIONS (3)
  - Tenderness [Unknown]
  - Pain in extremity [Unknown]
  - Nail growth abnormal [Unknown]

NARRATIVE: CASE EVENT DATE: 20201201
